FAERS Safety Report 18530371 (Version 2)
Quarter: 2020Q4

REPORT INFORMATION
  Report Type: Report from Study
  Country: PL (occurrence: PL)
  Receive Date: 20201120
  Receipt Date: 20201202
  Transmission Date: 20210114
  Serious: Yes (Death)
  Sender: FDA-Public Use
  Company Number: PL-BAXTER-2020BAX023738

PATIENT

DRUGS (9)
  1. DACTINOMYCIN [Suspect]
     Active Substance: DACTINOMYCIN
     Indication: UNDIFFERENTIATED SARCOMA
     Route: 065
  2. HOLOXAN [Suspect]
     Active Substance: IFOSFAMIDE
     Indication: UNDIFFERENTIATED SARCOMA
     Route: 065
  3. VINCRISTINE [Suspect]
     Active Substance: VINCRISTINE
     Indication: UNDIFFERENTIATED SARCOMA
     Route: 065
  4. EPIRUBICIN [Suspect]
     Active Substance: EPIRUBICIN
     Indication: UNDIFFERENTIATED SARCOMA
     Route: 065
  5. ENDOXAN [Suspect]
     Active Substance: CYCLOPHOSPHAMIDE
     Indication: UNDIFFERENTIATED SARCOMA
     Route: 065
  6. DACARBAZINE. [Suspect]
     Active Substance: DACARBAZINE
     Indication: UNDIFFERENTIATED SARCOMA
     Route: 065
  7. DOXIL [Suspect]
     Active Substance: DOXORUBICIN HYDROCHLORIDE
     Indication: UNDIFFERENTIATED SARCOMA
     Route: 065
  8. CARBOPLATIN. [Suspect]
     Active Substance: CARBOPLATIN
     Indication: UNDIFFERENTIATED SARCOMA
     Route: 065
  9. ETOPOSIDE. [Suspect]
     Active Substance: ETOPOSIDE
     Indication: UNDIFFERENTIATED SARCOMA
     Route: 065

REACTIONS (1)
  - Toxicity to various agents [Fatal]
